FAERS Safety Report 7645134-3 (Version None)
Quarter: 2011Q3

REPORT INFORMATION
  Report Type: 
  Country: None (occurrence: None)
  Receive Date: 20110729
  Receipt Date: 20110725
  Transmission Date: 20111222
  Serious: Yes (Death, Hospitalization, Other)
  Sender: FDA-Public Use
  Company Number: PHHO2006US11747

PATIENT
  Sex: Female
  Weight: 46 kg

DRUGS (30)
  1. ZORTRESS [Suspect]
     Indication: HEART TRANSPLANT
     Dosage: 1.5 MG, Q12H
     Route: 048
     Dates: start: 20060530
  2. ISORDIL [Concomitant]
     Dosage: 20 MG, TID
     Dates: end: 20060721
  3. LASIX [Concomitant]
     Dosage: 10 MG, QD
  4. VICODIN [Concomitant]
     Dosage: 1 OR 2 TABBS  PRN
     Dates: end: 20060724
  5. CLOTRIMAZOLE [Concomitant]
  6. NEORAL [Suspect]
     Dosage: 275 MG, Q12H
     Route: 048
  7. PREDNISONE [Concomitant]
     Indication: HEART TRANSPLANT
     Dosage: 100 MG, QD
     Route: 048
     Dates: start: 20060530
  8. SOLU-MEDROL [Concomitant]
  9. VALCYTE [Concomitant]
     Dosage: 450 MG, BID
  10. PRILOSEC [Concomitant]
     Dosage: 20 MG, QD
     Dates: end: 20060721
  11. NEORAL [Suspect]
     Dosage: 100 MG, Q12H
     Route: 048
     Dates: end: 20060719
  12. VANCOMYCIN [Concomitant]
  13. ZORTRESS [Suspect]
     Dosage: 1 MG, Q12H
     Route: 048
     Dates: end: 20060719
  14. PREDNISONE [Concomitant]
     Dosage: 10 MG, QD
     Dates: start: 20060719, end: 20060721
  15. DIFLUCAN [Concomitant]
     Indication: OESOPHAGITIS
     Dosage: 200 MG, UNK
     Dates: start: 20060712
  16. BACTRIM [Concomitant]
  17. COLACE [Concomitant]
     Dosage: 100 MG, BID
  18. ZORTRESS [Suspect]
     Dosage: 1 MG, Q12H
     Route: 048
  19. ZORTRESS [Suspect]
     Dosage: 1.5 MG, Q12H
     Route: 048
  20. DIFLUCAN [Concomitant]
     Dosage: 100 MG, QD
     Dates: start: 20060713, end: 20060718
  21. POTASSIUM CHLORIDE [Concomitant]
     Dosage: 20 MEQ, QD
     Dates: end: 20060729
  22. TYLENOL-500 [Concomitant]
  23. BENADRYL [Concomitant]
  24. NEORAL [Suspect]
     Indication: HEART TRANSPLANT
     Dosage: 200 MG, Q12H
     Route: 048
     Dates: start: 20060530
  25. NEORAL [Suspect]
     Dosage: 75 MG, BID
     Route: 048
  26. MYCELEX [Concomitant]
     Dosage: 10 MG, AFTER MEALS
  27. ASPIRIN [Concomitant]
     Dosage: 81 MG, QD
  28. ZOCOR [Concomitant]
     Dosage: 10 MG, QD
  29. CYTOGAM [Concomitant]
  30. PREVACID [Concomitant]
     Dosage: 40 MG, QD

REACTIONS (29)
  - BLOOD CREATININE INCREASED [None]
  - PLEURAL EFFUSION [None]
  - CARDIOMEGALY [None]
  - DEEP VEIN THROMBOSIS [None]
  - ANAEMIA [None]
  - CARDIAC ARREST [None]
  - HYPOTENSION [None]
  - LUNG CONSOLIDATION [None]
  - HEART TRANSPLANT REJECTION [None]
  - BONE MARROW TOXICITY [None]
  - PANCYTOPENIA [None]
  - MULTI-ORGAN FAILURE [None]
  - NEPHROPATHY TOXIC [None]
  - PARAINFLUENZAE VIRUS INFECTION [None]
  - PULMONARY VASCULAR DISORDER [None]
  - DIARRHOEA [None]
  - MENTAL STATUS CHANGES [None]
  - LUNG INFILTRATION [None]
  - PERICARDIAL EFFUSION [None]
  - IMMUNOSUPPRESSANT DRUG LEVEL INCREASED [None]
  - BONE MARROW FAILURE [None]
  - RESPIRATORY FAILURE [None]
  - RENAL IMPAIRMENT [None]
  - LEUKOPENIA [None]
  - THROMBOCYTOPENIA [None]
  - SEPSIS [None]
  - HAEMORRHAGE [None]
  - ASPERGILLOSIS [None]
  - PNEUMONIA [None]
